FAERS Safety Report 4507720-9 (Version None)
Quarter: 2004Q4

REPORT INFORMATION
  Report Type: 
  Country: None (occurrence: None)
  Receive Date: 20041015
  Receipt Date: 20030922
  Transmission Date: 20050328
  Serious: Yes (Other)
  Sender: FDA-Public Use
  Company Number: 2003040517

PATIENT
  Age: 76 Year
  Sex: Male

DRUGS (1)
  1. NEURONTIN [Suspect]
     Indication: POST HERPETIC NEURALGIA
     Dosage: 600 MG (DAILY), ORAL
     Route: 048
     Dates: start: 20030901, end: 20030901

REACTIONS (6)
  - HERPES ZOSTER [None]
  - MEDICATION ERROR [None]
  - PLATELET COUNT DECREASED [None]
  - PRURITUS [None]
  - SOMNOLENCE [None]
  - WEIGHT DECREASED [None]
